FAERS Safety Report 5925170-5 (Version None)
Quarter: 2008Q4

REPORT INFORMATION
  Report Type: 
  Country: None (occurrence: None)
  Receive Date: 20081021
  Receipt Date: 20081009
  Transmission Date: 20090506
  Serious: Yes (Hospitalization, Other)
  Sender: FDA-Public Use
  Company Number: DE-WYE-H06309408

PATIENT
  Sex: Male
  Weight: 94 kg

DRUGS (10)
  1. CYCLOSPORINE [Suspect]
     Indication: PROPHYLAXIS AGAINST TRANSPLANT REJECTION
     Dosage: ^220 BID^
     Route: 048
     Dates: start: 20070406
  2. CELLCEPT [Concomitant]
     Indication: IMMUNOSUPPRESSANT DRUG THERAPY
     Dosage: 2 X 500 MG (FREQUENCY NOT REPORTED)
     Route: 065
  3. CELLCEPT [Concomitant]
     Indication: PROPHYLAXIS AGAINST TRANSPLANT REJECTION
  4. IDEOS [Concomitant]
     Indication: OSTEOPOROSIS PROPHYLAXIS
     Dosage: ^1-0-0^
     Route: 065
  5. CARMIAN [Concomitant]
     Indication: HYPERTENSION
     Dosage: 15 MG (FREQUENCY NOT REPORTED)
     Route: 065
  6. BELOC ZOK [Concomitant]
     Indication: HYPERTENSION
     Dosage: ^1-0-0^
     Route: 065
  7. PANTOZOL [Concomitant]
     Indication: PROPHYLAXIS AGAINST GASTROINTESTINAL ULCER
     Dosage: 20 MG (FREQUENCY NOT REPORTED)
     Route: 065
  8. DECORTIN [Concomitant]
     Indication: IMMUNOSUPPRESSANT DRUG THERAPY
     Dosage: 7.5 MG (FREQUENCY NOT REPORTED)
     Route: 065
  9. DECORTIN [Concomitant]
     Indication: PROPHYLAXIS AGAINST TRANSPLANT REJECTION
  10. ZEFFIX [Concomitant]
     Indication: ANTIVIRAL PROPHYLAXIS
     Dosage: 100 MG (FREQUENCY NOT REPORTED)
     Route: 065

REACTIONS (1)
  - HEPATIC NEOPLASM MALIGNANT RECURRENT [None]
